FAERS Safety Report 5354264-0 (Version None)
Quarter: 2007Q2

REPORT INFORMATION
  Report Type: 
  Country: None (occurrence: None)
  Receive Date: 20070521
  Receipt Date: 20070208
  Transmission Date: 20071010
  Serious: No
  Sender: FDA-Public Use
  Company Number: WAES 0702USA01205

PATIENT
  Age: 75 Year
  Sex: Male

DRUGS (2)
  1. JANUVIA [Suspect]
     Indication: BLOOD GLUCOSE
     Dosage: 100 MG/DAILY/PO
     Route: 048
     Dates: start: 20070204
  2. GLIPIZIDE [Concomitant]

REACTIONS (4)
  - BLOOD GLUCOSE INCREASED [None]
  - HEADACHE [None]
  - PHARYNGOLARYNGEAL PAIN [None]
  - RHINORRHOEA [None]
